FAERS Safety Report 4661543-9 (Version None)
Quarter: 2005Q2

REPORT INFORMATION
  Report Type: 
  Country: None (occurrence: None)
  Receive Date: 20050512
  Receipt Date: 20050512
  Transmission Date: 20051028
  Serious: Yes (Hospitalization)
  Sender: FDA-Public Use
  Company Number: None

PATIENT
  Sex: Female
  Weight: 77.8 kg

DRUGS (7)
  1. IRESSA [Suspect]
     Indication: GLIOBLASTOMA MULTIFORME
     Dosage: 500 MG PO QD
     Route: 048
     Dates: start: 20050114
  2. RAPAMUNE [Suspect]
     Indication: GLIOBLASTOMA MULTIFORME
     Dosage: 5 MG PO QD
     Route: 048
     Dates: start: 20050114
  3. DECADRON [Concomitant]
  4. MAGIC MOUTH WASH WITH LIDOCAINE [Concomitant]
  5. PEPCID [Concomitant]
  6. AMOXICILLIN [Concomitant]
  7. LIDOCAINE/CESITIN/NYSTATION [Concomitant]

REACTIONS (11)
  - ABDOMINAL PAIN [None]
  - ANOREXIA [None]
  - ASTHENIA [None]
  - BACK PAIN [None]
  - CALCULUS URETERIC [None]
  - DEPRESSED LEVEL OF CONSCIOUSNESS [None]
  - DIARRHOEA [None]
  - DIFFICULTY IN WALKING [None]
  - HYPOMAGNESAEMIA [None]
  - MENINGEAL DISORDER [None]
  - MUSCLE SPASMS [None]
